FAERS Safety Report 13585635 (Version 1)
Quarter: 2017Q2

REPORT INFORMATION
  Report Type: Spontaneous
  Country: US (occurrence: US)
  Receive Date: 20170526
  Receipt Date: 20170526
  Transmission Date: 20170830
  Serious: No
  Sender: FDA-Public Use
  Company Number: US-BAUSCH-BL-2016-016099

PATIENT
  Sex: Female

DRUGS (1)
  1. CUPRIMINE [Suspect]
     Active Substance: PENICILLAMINE
     Indication: SYSTEMIC SCLERODERMA
     Route: 065

REACTIONS (3)
  - Product quality issue [Unknown]
  - Off label use [Unknown]
  - Feeling abnormal [Unknown]
